FAERS Safety Report 9292781 (Version 1)
Quarter: 2013Q2

REPORT INFORMATION
  Report Type: Spontaneous
  Country: US (occurrence: None)
  Receive Date: 20130515
  Receipt Date: 20130515
  Transmission Date: 20140414
  Serious: Yes (Disabling)
  Sender: FDA-Public Use
  Company Number: None

PATIENT
  Sex: Female
  Weight: 75.75 kg

DRUGS (3)
  1. CHORTHALIDONE [Suspect]
  2. AMLODIPINE BESYLATE [Suspect]
  3. MIRCO-K [Concomitant]

REACTIONS (2)
  - Muscle spasms [None]
  - Gait disturbance [None]
